FAERS Safety Report 15552238 (Version 1)
Quarter: 2018Q4

REPORT INFORMATION
  Report Type: Spontaneous
  Country: US (occurrence: US)
  Receive Date: 20181025
  Receipt Date: 20181025
  Transmission Date: 20190205
  Serious: Yes (Other)
  Sender: FDA-Public Use
  Company Number: US-ENDO PHARMACEUTICALS INC-2018-042389

PATIENT
  Sex: Male

DRUGS (2)
  1. CLOMIPHENE CITRATE. [Suspect]
     Active Substance: CLOMIPHENE CITRATE
     Indication: TESTICULAR FAILURE
     Dosage: 50 MG, DAILY
     Route: 048
  2. CITALOPRAM [Concomitant]
     Active Substance: CITALOPRAM HYDROBROMIDE
     Indication: PRODUCT USED FOR UNKNOWN INDICATION
     Dosage: 20 MG, OD
     Route: 065

REACTIONS (2)
  - Off label use [Unknown]
  - Suicidal ideation [Unknown]
